FAERS Safety Report 21264484 (Version 1)
Quarter: 2022Q3

REPORT INFORMATION
  Report Type: Spontaneous
  Country: US (occurrence: US)
  Receive Date: 20220829
  Receipt Date: 20220829
  Transmission Date: 20221026
  Serious: No
  Sender: FDA-Public Use
  Company Number: US-ORGANON-O2208USA001704

PATIENT
  Age: 22 Year
  Sex: Female
  Weight: 85.714 kg

DRUGS (1)
  1. NEXPLANON [Suspect]
     Active Substance: ETONOGESTREL
     Indication: Contraception
     Dosage: 1 IMPLANT IN RIGHT ARM
     Route: 059
     Dates: start: 20220601

REACTIONS (9)
  - Decreased appetite [Not Recovered/Not Resolved]
  - Photophobia [Not Recovered/Not Resolved]
  - Headache [Not Recovered/Not Resolved]
  - Asthenia [Not Recovered/Not Resolved]
  - Hypersomnia [Not Recovered/Not Resolved]
  - Abdominal pain [Not Recovered/Not Resolved]
  - Polymenorrhoea [Recovered/Resolved]
  - Heavy menstrual bleeding [Recovered/Resolved]
  - Inappropriate schedule of product administration [Unknown]

NARRATIVE: CASE EVENT DATE: 20220601
